FAERS Safety Report 4426717-0 (Version None)
Quarter: 2004Q3

REPORT INFORMATION
  Report Type: 
  Country: None (occurrence: None)
  Receive Date: 20040816
  Receipt Date: 20040422
  Transmission Date: 20050211
  Serious: Yes (Hospitalization)
  Sender: FDA-Public Use
  Company Number: JP-ROCHE-365066

PATIENT
  Age: 66 Year
  Sex: Male
  Weight: 45 kg

DRUGS (11)
  1. PANALDINE [Suspect]
     Indication: ACUTE MYOCARDIAL INFARCTION
     Dosage: INDICATION ALSO REPORTED AS PERCUTANEOUS TRANSLUMINAL CORONARY ANGIOPLASTY.
     Route: 048
     Dates: start: 20040302, end: 20040401
  2. CRAVIT [Suspect]
     Indication: CYSTITIS
     Route: 048
     Dates: start: 20040311, end: 20040325
  3. HEPARIN [Concomitant]
     Indication: ACUTE MYOCARDIAL INFARCTION
     Dosage: INDICATION ALSO REPORTED AS PERCUTANEOUS TRANSLUMINAL CORONARY ANGIOPLASTY.
     Route: 042
     Dates: start: 20040301, end: 20040306
  4. ASPIRIN [Concomitant]
     Indication: ACUTE MYOCARDIAL INFARCTION
     Dosage: INDICATION ALSO REPORTED AS PERCUTANEOUS TRANSLUMINAL CORONARY ANGIOPLASTY.
     Route: 048
     Dates: start: 20040302, end: 20040401
  5. DIOVAN [Concomitant]
     Indication: HYPERTENSION
     Route: 048
     Dates: start: 20040302
  6. LOCHOL [Concomitant]
     Indication: HYPERCHOLESTEROLAEMIA
     Route: 048
     Dates: start: 20040302
  7. AMLODIN [Concomitant]
     Indication: HYPERTENSION
     Route: 048
     Dates: start: 20040303
  8. LASIX [Concomitant]
     Route: 042
     Dates: start: 20040304, end: 20040304
  9. LEPETAN [Concomitant]
     Route: 042
     Dates: start: 20040304, end: 20040304
  10. ATARAX [Concomitant]
     Route: 042
     Dates: start: 20040304, end: 20040304
  11. CEFAZOLIN [Concomitant]

REACTIONS (6)
  - C-REACTIVE PROTEIN INCREASED [None]
  - HAEMOLYTIC URAEMIC SYNDROME [None]
  - MYOCARDIAL INFARCTION [None]
  - OCCULT BLOOD POSITIVE [None]
  - PYREXIA [None]
  - THROMBOTIC THROMBOCYTOPENIC PURPURA [None]
